FAERS Safety Report 5026852-2 (Version None)
Quarter: 2006Q2

REPORT INFORMATION
  Report Type: 
  Country: None (occurrence: None)
  Receive Date: 20060609
  Receipt Date: 20060531
  Transmission Date: 20061013
  Serious: Yes (Disabling)
  Sender: FDA-Public Use
  Company Number: 2006JP001416

PATIENT
  Age: 17 Year
  Sex: Female
  Weight: 50 kg

DRUGS (4)
  1. PROTOPIC [Suspect]
     Indication: DERMATITIS ATOPIC
     Dosage: TOPICAL
     Route: 061
     Dates: start: 20060515, end: 20060515
  2. PROTOPIC [Suspect]
     Indication: DERMATITIS ATOPIC
     Dosage: TOPICAL
     Route: 061
     Dates: start: 20051212
  3. KINDAVATE (CLOBETASONE BUTYRATE) OINTMENT [Concomitant]
  4. MYSER (DIFLUPREDNATE) OINTMENT [Concomitant]

REACTIONS (1)
  - VISUAL ACUITY REDUCED [None]
